FAERS Safety Report 23835192 (Version 2)
Quarter: 2024Q2

REPORT INFORMATION
  Report Type: Spontaneous
  Country: US (occurrence: US)
  Receive Date: 20240509
  Receipt Date: 20240514
  Transmission Date: 20240715
  Serious: No
  Sender: FDA-Public Use
  Company Number: US-002147023-NVSC2024US095855

PATIENT
  Age: 61 Year
  Sex: Female

DRUGS (3)
  1. VOLTAREN [Suspect]
     Active Substance: DICLOFENAC SODIUM
     Indication: Product used for unknown indication
     Dosage: UNK
  2. COSENTYX [Suspect]
     Active Substance: SECUKINUMAB
     Indication: Product used for unknown indication
     Dosage: UNK
  3. COSENTYX PRE FILLED SYRINGE (DEVICE) (SECUKINUMAB) Injection [Concomitant]

REACTIONS (5)
  - Rash [Unknown]
  - Skin burning sensation [Unknown]
  - Skin exfoliation [Unknown]
  - Rash pruritic [Unknown]
  - Rash erythematous [Unknown]
